FAERS Safety Report 13340359 (Version 1)
Quarter: 2017Q1

REPORT INFORMATION
  Report Type: Spontaneous
  Country: FR (occurrence: FR)
  Receive Date: 20170316
  Receipt Date: 20170316
  Transmission Date: 20170428
  Serious: Yes (Other)
  Sender: FDA-Public Use
  Company Number: FR-ACCORD-049074

PATIENT
  Age: 57 Year
  Sex: Female

DRUGS (9)
  1. ONDANSETRON [Suspect]
     Active Substance: ONDANSETRON
     Indication: PROPHYLAXIS OF NAUSEA AND VOMITING
     Dosage: STRENGTH: 8 MG/4 ML
     Route: 042
     Dates: start: 20170216
  2. GEMZAR [Concomitant]
     Active Substance: GEMCITABINE HYDROCHLORIDE
     Dates: start: 20170202, end: 20170216
  3. FEMARA [Concomitant]
     Active Substance: LETROZOLE
     Dates: start: 201509, end: 201607
  4. CAELYX [Concomitant]
     Active Substance: DOXORUBICIN HYDROCHLORIDE
     Indication: CHEMOTHERAPY
     Dates: start: 20160902, end: 20170103
  5. YONDELIS [Concomitant]
     Active Substance: TRABECTEDIN
     Indication: CHEMOTHERAPY
     Dates: start: 20160902, end: 20170103
  6. METHYLPREDNISOLONE. [Concomitant]
     Active Substance: METHYLPREDNISOLONE
  7. BEVACIZUMAB [Concomitant]
     Active Substance: BEVACIZUMAB
     Dates: start: 201405, end: 201502
  8. CARBOPLATIN. [Suspect]
     Active Substance: CARBOPLATIN
     Indication: OVARIAN CANCER METASTATIC
  9. OXALIPLATIN. [Suspect]
     Active Substance: OXALIPLATIN
     Indication: OVARIAN CANCER METASTATIC
     Dosage: STRENGTH: 5 MG/ML
     Route: 042
     Dates: start: 20170216

REACTIONS (1)
  - Hypersensitivity [Recovered/Resolved]
